FAERS Safety Report 12135290 (Version 2)
Quarter: 2016Q1

REPORT INFORMATION
  Report Type: Spontaneous
  Country: IR (occurrence: IR)
  Receive Date: 20160302
  Receipt Date: 20160308
  Transmission Date: 20160526
  Serious: Yes (Death, Hospitalization)
  Sender: FDA-Public Use
  Company Number: IR-ASTRAZENECA-2016SE19228

PATIENT
  Age: 65 Year
  Sex: Female

DRUGS (1)
  1. PULMICORT RESPULES [Suspect]
     Active Substance: BUDESONIDE
     Indication: DYSPNOEA
     Dosage: 0.25 MG/ML UNKNOWN
     Route: 055

REACTIONS (6)
  - Cyanosis [Unknown]
  - Cardiac failure [Unknown]
  - Death [Fatal]
  - Pneumonia [Unknown]
  - Anaphylactic reaction [Unknown]
  - Pleural effusion [Unknown]
